FAERS Safety Report 6039742-3 (Version None)
Quarter: 2009Q1

REPORT INFORMATION
  Report Type: 
  Country: None (occurrence: None)
  Receive Date: 20090116
  Receipt Date: 20081217
  Transmission Date: 20090719
  Serious: No
  Sender: FDA-Public Use
  Company Number: US-BAYER-200841105NA

PATIENT
  Age: 43 Year
  Sex: Male

DRUGS (1)
  1. MAGNEVIST TRADE MULTIUSE [Suspect]
     Indication: NUCLEAR MAGNETIC RESONANCE IMAGING BRAIN
     Dosage: TOTAL DAILY DOSE: 18 ML  UNIT DOSE: 100 ML
     Route: 042
     Dates: start: 20081217, end: 20081217

REACTIONS (4)
  - ERYTHEMA [None]
  - PHARYNGEAL ERYTHEMA [None]
  - PRURITUS [None]
  - URTICARIA [None]
